FAERS Safety Report 6444776-0 (Version None)
Quarter: 2009Q4

REPORT INFORMATION
  Report Type: 
  Country: None (occurrence: None)
  Receive Date: 20091118
  Receipt Date: 20091111
  Transmission Date: 20100525
  Serious: Yes (Other)
  Sender: FDA-Public Use
  Company Number: B0603417A

PATIENT
  Age: 69 Year
  Sex: Male
  Weight: 105 kg

DRUGS (4)
  1. DUTASTERIDE [Suspect]
     Route: 048
     Dates: start: 20090828, end: 20091001
  2. LERCANIDIPINE [Concomitant]
     Indication: HYPERTENSION
     Dosage: 10MG PER DAY
     Route: 048
     Dates: start: 20050504
  3. RAMIPRIL [Concomitant]
     Indication: HYPERTENSION
     Dosage: 5MG PER DAY
     Route: 048
     Dates: start: 20071217
  4. OMEPRAZOLE [Concomitant]
     Dosage: 20MG PER DAY
     Route: 048
     Dates: start: 20070320

REACTIONS (1)
  - SKIN EXFOLIATION [None]
